FAERS Safety Report 8237572-5 (Version None)
Quarter: 2012Q1

REPORT INFORMATION
  Report Type: 
  Country: None (occurrence: None)
  Receive Date: 20120323
  Receipt Date: 20120313
  Transmission Date: 20120608
  Serious: Yes (Life-Threatening)
  Sender: FDA-Public Use
  Company Number: US-2012-10244

PATIENT
  Age: 55 Year
  Sex: Female

DRUGS (7)
  1. BUSULFEX [Suspect]
     Indication: ACUTE MYELOID LEUKAEMIA
     Dosage: 3.2 MG/KG, QD, INTRAVENOUS, 220.2 MG MILLIGRAM(S), UNK
     Route: 042
     Dates: start: 20111208
  2. BUSULFEX [Suspect]
     Indication: ACUTE MYELOID LEUKAEMIA
     Dosage: 3.2 MG/KG, QD, INTRAVENOUS, 220.2 MG MILLIGRAM(S), UNK
     Route: 042
     Dates: start: 20111205
  3. ANTI-THYMOCYTE GLOBULIN NOS [Concomitant]
  4. CYCLOPHOSPHAMIDE [Suspect]
     Indication: ACUTE MYELOID LEUKAEMIA
     Dosage: 60 MG/KG, QD, INTRAVENOUS, 60 MG/KG, DAILY DOSE, INTRAVENOUS
     Route: 042
     Dates: start: 20111211
  5. CYCLOPHOSPHAMIDE [Suspect]
     Indication: ACUTE MYELOID LEUKAEMIA
     Dosage: 60 MG/KG, QD, INTRAVENOUS, 60 MG/KG, DAILY DOSE, INTRAVENOUS
     Route: 042
     Dates: start: 20111210
  6. ZOVIRAX [Concomitant]
  7. FLUCONAZOLE [Concomitant]

REACTIONS (3)
  - RESPIRATORY DISTRESS [None]
  - ACUTE PULMONARY OEDEMA [None]
  - APLASIA [None]
